FAERS Safety Report 10247231 (Version 1)
Quarter: 2014Q2

REPORT INFORMATION
  Report Type: Spontaneous
  Country: US (occurrence: US)
  Receive Date: 20140619
  Receipt Date: 20140619
  Transmission Date: 20141212
  Serious: Yes (Hospitalization)
  Sender: FDA-Public Use
  Company Number: US-GLAXOSMITHKLINE-A1077115A

PATIENT
  Age: 38 Year
  Sex: Female

DRUGS (8)
  1. VENTOLIN [Suspect]
     Indication: ASTHMA
     Dosage: 3PUFF AS REQUIRED
     Route: 055
  2. ADVAIR HFA [Suspect]
     Indication: ASTHMA
     Dosage: 1PUFF TWICE PER DAY
     Route: 055
     Dates: start: 2012
  3. PREDNISONE [Concomitant]
  4. MUCINEX [Concomitant]
  5. CLARITIN [Concomitant]
  6. CYMBALTA [Concomitant]
  7. SEROQUEL [Concomitant]
  8. XANAX [Concomitant]

REACTIONS (4)
  - Pneumonia [Unknown]
  - Pulmonary congestion [Unknown]
  - Dyspnoea [Not Recovered/Not Resolved]
  - Off label use [Unknown]
